FAERS Safety Report 7176852-1 (Version None)
Quarter: 2010Q4

REPORT INFORMATION
  Report Type: 
  Country: None (occurrence: None)
  Receive Date: 20101216
  Receipt Date: 20101216
  Transmission Date: 20110411
  Serious: Yes (Other)
  Sender: FDA-Public Use
  Company Number: None

PATIENT
  Sex: Male
  Weight: 68.4932 kg

DRUGS (1)
  1. DIVALPROEX SODIUM [Suspect]
     Indication: EPILEPSY
     Dosage: TWO 500 MG TABLETS TWICE A DAY PO
     Route: 048
     Dates: start: 20101124, end: 20101210

REACTIONS (3)
  - ANTICONVULSANT DRUG LEVEL BELOW THERAPEUTIC [None]
  - DRUG INEFFECTIVE [None]
  - PRODUCT SUBSTITUTION ISSUE [None]
